FAERS Safety Report 11354182 (Version 1)
Quarter: 2015Q3

REPORT INFORMATION
  Report Type: Spontaneous
  Country: US (occurrence: US)
  Receive Date: 20150807
  Receipt Date: 20150807
  Transmission Date: 20151125
  Serious: No
  Sender: FDA-Public Use
  Company Number: US-JNJFOC-20141209528

PATIENT
  Age: 36 Year
  Sex: Male
  Weight: 77.11 kg

DRUGS (4)
  1. NASAL SPRAY UNSPECIFIED [Concomitant]
     Active Substance: UNSPECIFIED INGREDIENT
     Indication: NASAL DISORDER
     Dosage: WEEK
     Route: 065
     Dates: start: 2014
  2. OTHER THERAPEUTIC PRODUCT [Concomitant]
     Active Substance: UNSPECIFIED INGREDIENT
     Indication: NUTRITIONAL SUPPLEMENTATION
     Dosage: 1-2 PILLS DAILY; MONTH
     Route: 065
     Dates: start: 201409
  3. RIPPED FUEL [Concomitant]
     Active Substance: DIETARY SUPPLEMENT
     Indication: NUTRITIONAL SUPPLEMENTATION
     Dosage: 1-2 PILLS DAILY; MONTH
     Route: 065
     Dates: start: 201409
  4. SUDAFED [Suspect]
     Active Substance: PSEUDOEPHEDRINE HYDROCHLORIDE
     Indication: PARANASAL SINUS DISCOMFORT
     Dosage: 2 TABLETS EVERY 6-8 HOURS
     Route: 048
     Dates: start: 20141104

REACTIONS (2)
  - Inappropriate schedule of drug administration [Unknown]
  - Urine analysis abnormal [Recovered/Resolved]
